FAERS Safety Report 9406209 (Version 1)
Quarter: 2013Q3

REPORT INFORMATION
  Report Type: Spontaneous
  Country: US (occurrence: US)
  Receive Date: 20130717
  Receipt Date: 20130717
  Transmission Date: 20140515
  Serious: No
  Sender: FDA-Public Use
  Company Number: US-009507513-1307USA007619

PATIENT
  Age: 19 Year
  Sex: Female
  Weight: 65.76 kg

DRUGS (2)
  1. NEXPLANON [Suspect]
     Indication: CONTRACEPTION
     Dosage: UNK
     Route: 059
     Dates: start: 20130509
  2. VALTREX [Concomitant]
     Dosage: UNK

REACTIONS (3)
  - Menorrhagia [Recovered/Resolved]
  - Oligomenorrhoea [Unknown]
  - Menorrhagia [Unknown]
